FAERS Safety Report 7712892-9 (Version None)
Quarter: 2011Q3

REPORT INFORMATION
  Report Type: 
  Country: None (occurrence: None)
  Receive Date: 20110826
  Receipt Date: 20110815
  Transmission Date: 20111222
  Serious: Yes (Other)
  Sender: FDA-Public Use
  Company Number: US-BRISTOL-MYERS SQUIBB COMPANY-16004921

PATIENT
  Age: 39 Year
  Sex: Female

DRUGS (3)
  1. BUSULFAN [Suspect]
     Indication: HODGKIN'S DISEASE
     Route: 048
  2. PHENYTOIN SODIUM [Suspect]
  3. CYCLOPHOSPHAMIDE [Suspect]
     Indication: HODGKIN'S DISEASE

REACTIONS (1)
  - GRAND MAL CONVULSION [None]
